FAERS Safety Report 9243362 (Version 4)
Quarter: 2013Q2

REPORT INFORMATION
  Report Type: Spontaneous
  Country: US (occurrence: US)
  Receive Date: 20130420
  Receipt Date: 20130614
  Transmission Date: 20140414
  Serious: Yes (Hospitalization)
  Sender: FDA-Public Use
  Company Number: US-B.I. PHARMACEUTICALS,INC./RIDGEFIELD-2013-BI-10571BP

PATIENT
  Age: 76 Year
  Sex: Male
  Weight: 85.5 kg

DRUGS (9)
  1. PRADAXA [Suspect]
     Indication: ATRIAL FIBRILLATION
     Dosage: 300 MG
     Route: 048
     Dates: start: 20111104
  2. AMIODARONE [Suspect]
     Indication: ATRIAL FIBRILLATION
     Dosage: 900 MG
     Route: 048
     Dates: start: 20111104
  3. LEVALBUTEROL [Concomitant]
  4. IPRATROPIUM [Concomitant]
  5. DILTIAZEM [Concomitant]
     Dosage: 360 MG
  6. COLACE [Concomitant]
     Dosage: 200 MG
  7. ADVAIR [Concomitant]
  8. TAMSULOSIN [Concomitant]
     Dosage: 0.4 MG
  9. DIGOXIN [Concomitant]
     Dosage: 0.125 MG

REACTIONS (5)
  - Drug interaction [Unknown]
  - Prothrombin time abnormal [Unknown]
  - International normalised ratio abnormal [Unknown]
  - Activated partial thromboplastin time prolonged [Unknown]
  - Urogenital haemorrhage [Recovered/Resolved]
